FAERS Safety Report 9388795 (Version 1)
Quarter: 2013Q3

REPORT INFORMATION
  Report Type: Spontaneous
  Country: GB (occurrence: GB)
  Receive Date: 20130708
  Receipt Date: 20130708
  Transmission Date: 20140515
  Serious: Yes (Other)
  Sender: FDA-Public Use
  Company Number: PHHY2013GB069858

PATIENT
  Sex: Female

DRUGS (4)
  1. METHOTREXATE [Suspect]
     Indication: RHEUMATOID ARTHRITIS
     Dosage: 15 MG
     Route: 048
     Dates: start: 1999, end: 20130603
  2. ROACTEMRA [Interacting]
     Indication: RHEUMATOID ARTHRITIS
     Dosage: 672 MG
     Route: 042
     Dates: start: 20120115, end: 20130517
  3. FOLIC ACID [Concomitant]
     Indication: RHEUMATOID ARTHRITIS
     Dosage: 5 MG
     Route: 048
     Dates: start: 1999
  4. MELOXICAM [Concomitant]
     Dosage: 15 MG
     Route: 048
     Dates: start: 1999

REACTIONS (4)
  - Mouth ulceration [Recovered/Resolved]
  - Lower respiratory tract infection [Recovered/Resolved]
  - Neutropenia [Recovered/Resolved]
  - Drug interaction [Unknown]
